FAERS Safety Report 4798107-2 (Version None)
Quarter: 2005Q4

REPORT INFORMATION
  Report Type: 
  Country: None (occurrence: None)
  Receive Date: 20051011
  Receipt Date: 20051011
  Transmission Date: 20060501
  Serious: Yes (Other)
  Sender: FDA-Public Use
  Company Number: None

PATIENT
  Age: 54 Year

DRUGS (4)
  1. DOCETAXEL [Suspect]
     Indication: BREAST CANCER STAGE II
     Dosage: 100MG/M2  Q 3 WKS X 4
     Dates: start: 20020104
  2. ADRIAMYCIN PFS [Suspect]
     Dosage: 60MG/M2
  3. CYTOXAN [Suspect]
     Dosage: 600MG/M2
  4. TAXOTERE [Concomitant]

REACTIONS (10)
  - ALOPECIA [None]
  - ARTHRALGIA [None]
  - DEHYDRATION [None]
  - FEBRILE NEUTROPENIA [None]
  - FLUID RETENTION [None]
  - HAIR GROWTH ABNORMAL [None]
  - MUCOSAL INFLAMMATION [None]
  - NAIL DISORDER [None]
  - OEDEMA [None]
  - PERIPHERAL SENSORY NEUROPATHY [None]
